FAERS Safety Report 4778930-0 (Version None)
Quarter: 2005Q3

REPORT INFORMATION
  Report Type: 
  Country: None (occurrence: None)
  Receive Date: 20050922
  Receipt Date: 20050908
  Transmission Date: 20060218
  Serious: Yes (Hospitalization)
  Sender: FDA-Public Use
  Company Number: 2005RL000116

PATIENT
  Sex: 0

DRUGS (3)
  1. OMEGA-3 ACID ETHYL ESTERS (OMEGA-3 ACID ETHYL ESTERS) [Suspect]
     Indication: NUTRITIONAL SUPPORT
     Dosage: UNKNOWN; UNK; GT
  2. IMPACT (CHLORPHENAMINE MALEATE/PHENIRAMINE MALEATE/PHENYLPROPANOLAMINE [Suspect]
     Indication: NUTRITIONAL SUPPORT
     Dosage: UNKNOWN;UNK;GT
  3. CEFAZOLIN [Concomitant]

REACTIONS (1)
  - URINARY TRACT INFECTION [None]
